FAERS Safety Report 5571259-2 (Version None)
Quarter: 2007Q4

REPORT INFORMATION
  Report Type: 
  Country: None (occurrence: None)
  Receive Date: 20071221
  Receipt Date: 20070402
  Transmission Date: 20080405
  Serious: No
  Sender: FDA-Public Use
  Company Number: A0645567A

PATIENT
  Age: 69 Year
  Sex: Female

DRUGS (2)
  1. FLONASE [Suspect]
     Dosage: 2SPR TWICE PER DAY
     Route: 045
     Dates: end: 20061001
  2. SALINE NASAL SPRAY [Concomitant]

REACTIONS (1)
  - DRUG INEFFECTIVE [None]
